FAERS Safety Report 24067102 (Version 4)
Quarter: 2024Q3

REPORT INFORMATION
  Report Type: Spontaneous
  Country: US (occurrence: US)
  Receive Date: 20240709
  Receipt Date: 20240823
  Transmission Date: 20241016
  Serious: Yes (Other)
  Sender: ROCHE
  Company Number: US-ROCHE-10000014142

PATIENT
  Age: 11 Year
  Sex: Female

DRUGS (1)
  1. EVRYSDI [Suspect]
     Active Substance: RISDIPLAM
     Indication: Spinal muscular atrophy
     Dosage: DAILY
     Route: 048
     Dates: start: 20240309

REACTIONS (4)
  - Concussion [Recovering/Resolving]
  - Stress fracture [Recovering/Resolving]
  - Ligament rupture [Recovering/Resolving]
  - Fall [Unknown]

NARRATIVE: CASE EVENT DATE: 20240620
